FAERS Safety Report 6009151-1 (Version None)
Quarter: 2008Q4

REPORT INFORMATION
  Report Type: 
  Country: None (occurrence: None)
  Receive Date: 20081216
  Receipt Date: 20081203
  Transmission Date: 20090506
  Serious: Yes (Hospitalization)
  Sender: FDA-Public Use
  Company Number: 2007SP003704

PATIENT
  Age: 92 Year
  Sex: Female
  Weight: 54.4316 kg

DRUGS (8)
  1. XOPENEX [Suspect]
     Indication: ASTHMA
     Dosage: 0.63 MG/3ML; BID; INHALATION, 0.63 MG/3ML; TID; INHALATION, 0.63 MG/3ML; QD; INHALATION
     Route: 055
     Dates: start: 20071101, end: 20070101
  2. XOPENEX [Suspect]
     Indication: ASTHMA
     Dosage: 0.63 MG/3ML; BID; INHALATION, 0.63 MG/3ML; TID; INHALATION, 0.63 MG/3ML; QD; INHALATION
     Route: 055
     Dates: start: 20050101, end: 20071001
  3. XOPENEX [Suspect]
     Indication: ASTHMA
     Dosage: 0.63 MG/3ML; BID; INHALATION, 0.63 MG/3ML; TID; INHALATION, 0.63 MG/3ML; QD; INHALATION
     Route: 055
     Dates: start: 20071001, end: 20071001
  4. PULMICORT-100 [Concomitant]
  5. VERAPAMIL [Concomitant]
  6. OXYGEN [Concomitant]
  7. VITAMINS [Concomitant]
  8. SOLU-MEDROL [Concomitant]

REACTIONS (8)
  - ASTHMA [None]
  - BRONCHIECTASIS [None]
  - CHRONIC OBSTRUCTIVE PULMONARY DISEASE [None]
  - HEART RATE INCREASED [None]
  - NASOPHARYNGITIS [None]
  - UPPER RESPIRATORY TRACT INFECTION [None]
  - VIRAL INFECTION [None]
  - WEIGHT INCREASED [None]
